FAERS Safety Report 5707341-6 (Version None)
Quarter: 2008Q2

REPORT INFORMATION
  Report Type: 
  Country: None (occurrence: None)
  Receive Date: 20080416
  Receipt Date: 20080411
  Transmission Date: 20081010
  Serious: Yes (Death, Life-Threatening)
  Sender: FDA-Public Use
  Company Number: US-BAXTER-2008BH003287

PATIENT
  Age: 61 Year
  Sex: Male
  Weight: 71 kg

DRUGS (11)
  1. HEPARIN SODIUM [Suspect]
     Indication: CARDIAC OPERATION
     Route: 042
     Dates: start: 20071114, end: 20071114
  2. HEPARIN SODIUM [Suspect]
     Indication: ANTICOAGULANT THERAPY
     Route: 042
     Dates: start: 20071114, end: 20071114
  3. HEPARIN SODIUM [Suspect]
     Route: 042
     Dates: start: 20071114, end: 20071114
  4. HEPARIN SODIUM [Suspect]
     Route: 042
     Dates: start: 20071114, end: 20071114
  5. HEPARIN SODIUM [Suspect]
     Route: 042
     Dates: start: 20071116, end: 20071116
  6. HEPARIN SODIUM [Suspect]
     Route: 042
     Dates: start: 20071116, end: 20071116
  7. ASPIRIN [Concomitant]
     Indication: DRUG USE FOR UNKNOWN INDICATION
     Dosage: DOSE UNIT:UNKNOWN
     Route: 048
  8. PRILOSEC [Concomitant]
     Indication: DRUG USE FOR UNKNOWN INDICATION
     Dosage: DOSE UNIT:UNKNOWN
     Route: 048
  9. LIPITOR [Concomitant]
     Indication: DRUG USE FOR UNKNOWN INDICATION
     Dosage: DOSE UNIT:UNKNOWN
     Route: 048
  10. DAILY MULTIVITAMIN [Concomitant]
     Indication: DRUG USE FOR UNKNOWN INDICATION
     Dosage: DOSE UNIT:UNKNOWN
     Route: 048
  11. GRAPE SEED EXTRACT [Concomitant]
     Indication: DRUG USE FOR UNKNOWN INDICATION
     Dosage: DOSE UNIT:UNKNOWN
     Route: 048

REACTIONS (8)
  - ANAPHYLACTIC SHOCK [None]
  - BLOOD PRESSURE DECREASED [None]
  - DYSPNOEA [None]
  - HYPOXIA [None]
  - NAUSEA [None]
  - NEUTROPENIA [None]
  - RESPIRATORY FAILURE [None]
  - VOMITING [None]
